FAERS Safety Report 7673136-X (Version None)
Quarter: 2011Q3

REPORT INFORMATION
  Report Type: 
  Country: None (occurrence: None)
  Receive Date: 20110810
  Receipt Date: 20110803
  Transmission Date: 20111222
  Serious: No
  Sender: FDA-Public Use
  Company Number: US-BIOGENIDEC-2011BI029416

PATIENT
  Age: 40 Year
  Sex: Female

DRUGS (1)
  1. AVONEX [Suspect]
     Indication: MULTIPLE SCLEROSIS
     Route: 030
     Dates: start: 20100121, end: 20101108

REACTIONS (5)
  - VOMITING [None]
  - INFLUENZA LIKE ILLNESS [None]
  - PAIN [None]
  - MIGRAINE [None]
  - HYPERSOMNIA [None]
